FAERS Safety Report 8957200 (Version 2)
Quarter: 2013Q1

REPORT INFORMATION
  Report Type: Spontaneous
  Country: DE (occurrence: DE)
  Receive Date: 20121211
  Receipt Date: 20130205
  Transmission Date: 20140127
  Serious: Yes (Hospitalization)
  Sender: FDA-Public Use
  Company Number: DE-JNJFOC-20121203623

PATIENT
  Age: 65 Year
  Sex: Male
  Weight: 90 kg

DRUGS (13)
  1. XARELTO [Suspect]
     Indication: CEREBROVASCULAR ACCIDENT PROPHYLAXIS
     Route: 048
     Dates: end: 20120713
  2. XARELTO [Suspect]
     Indication: ATRIAL FIBRILLATION
     Route: 048
     Dates: end: 20120713
  3. SIMVASTATIN [Concomitant]
     Route: 065
  4. BELOC ZOK [Concomitant]
     Route: 065
  5. RAMIPRIL [Concomitant]
     Route: 065
  6. TOREM [Concomitant]
     Route: 065
  7. REPAGLINIDE [Concomitant]
     Route: 065
  8. PREDNISOLON [Concomitant]
     Route: 065
     Dates: end: 20120728
  9. PREDNISOLON [Concomitant]
     Route: 065
     Dates: start: 20120729, end: 20120730
  10. PANTOPRAZOLE [Concomitant]
     Route: 065
  11. ACETYLSALICYLIC ACID [Concomitant]
     Route: 065
  12. MARCUMAR [Concomitant]
     Route: 065
  13. AMIODARON [Concomitant]
     Route: 065

REACTIONS (2)
  - Leukocytoclastic vasculitis [Recovering/Resolving]
  - Monarthritis [Recovering/Resolving]
